FAERS Safety Report 16711731 (Version 1)
Quarter: 2019Q3

REPORT INFORMATION
  Report Type: Spontaneous
  Country: US (occurrence: US)
  Receive Date: 20190816
  Receipt Date: 20190816
  Transmission Date: 20191004
  Serious: No
  Sender: FDA-Public Use
  Company Number: US-SA-2019SA224206

PATIENT
  Age: 59 Year
  Sex: Male

DRUGS (1)
  1. PRALUENT [Suspect]
     Active Substance: ALIROCUMAB
     Indication: CARDIOMYOPATHY
     Dosage: 150 MG, QOW
     Dates: start: 20180824

REACTIONS (1)
  - Headache [Not Recovered/Not Resolved]
